FAERS Safety Report 8902461 (Version 1)
Quarter: 2012Q4

REPORT INFORMATION
  Report Type: Report from Study
  Country: US (occurrence: US)
  Receive Date: 20121112
  Receipt Date: 20121112
  Transmission Date: 20130627
  Serious: Yes (Hospitalization)
  Sender: FDA-Public Use
  Company Number: US-JNJFOC-20121102614

PATIENT
  Age: 53 None
  Sex: Female
  Weight: 54.43 kg

DRUGS (5)
  1. SIMPONI [Suspect]
     Indication: ARTHRITIS
     Route: 058
     Dates: start: 2011
  2. SULFADIAZINE [Concomitant]
     Indication: COLITIS
  3. VITAMIN [Concomitant]
     Route: 048
  4. UNKNOWN MEDICATION [Concomitant]
     Indication: BLOOD PRESSURE ABNORMAL
     Route: 048
  5. LEVOTHYROXINE [Concomitant]
     Indication: THYROID DISORDER
     Route: 048

REACTIONS (6)
  - Surgery [Unknown]
  - Oesophagitis [Unknown]
  - Arthritis [Unknown]
  - Back disorder [Unknown]
  - Injection site pain [Not Recovered/Not Resolved]
  - Device malfunction [Not Recovered/Not Resolved]
